FAERS Safety Report 7376667-5 (Version None)
Quarter: 2011Q1

REPORT INFORMATION
  Report Type: 
  Country: None (occurrence: None)
  Receive Date: 20110317
  Receipt Date: 20110304
  Transmission Date: 20110831
  Serious: Yes (Death)
  Sender: FDA-Public Use
  Company Number: ALK_01603_2011

PATIENT
  Sex: Male
  Weight: 72.5755 kg

DRUGS (6)
  1. RAMIPRIL [Concomitant]
  2. COREG [Concomitant]
  3. NEXIUM [Concomitant]
  4. RITALIN [Concomitant]
  5. VIVITROL [Suspect]
     Indication: ALCOHOLISM
     Dosage: (INTRAMUSCULAR)
     Route: 030
     Dates: start: 20100813
  6. BUSPAR [Concomitant]

REACTIONS (1)
  - DRUG DOSE OMISSION [None]
